FAERS Safety Report 16724600 (Version 6)
Quarter: 2020Q2

REPORT INFORMATION
  Report Type: Spontaneous
  Country: US (occurrence: US)
  Receive Date: 20190821
  Receipt Date: 20200518
  Transmission Date: 20200713
  Serious: No
  Sender: FDA-Public Use
  Company Number: US-PFIZER INC-2019353425

PATIENT
  Age: 49 Year
  Sex: Female
  Weight: 95 kg

DRUGS (16)
  1. CLONAZEPAM. [Concomitant]
     Active Substance: CLONAZEPAM
     Indication: TACHYPHRENIA
  2. GABAPENTIN. [Concomitant]
     Active Substance: GABAPENTIN
     Indication: ANXIETY
     Dosage: 400 UG, DAILY(1 CAPSULE IN MORNING 3 CAPSULES AT NIGHT)
  3. VITAMIN B12 [Concomitant]
     Active Substance: CYANOCOBALAMIN
     Indication: METABOLIC SURGERY
     Dosage: 0.5 DF, DAILY (1/2 TABLET BY ORAL ROUTE/1 ,000 MCG TABLET DAILY)
     Route: 048
  4. MONTELUKAST SODIUM. [Concomitant]
     Active Substance: MONTELUKAST SODIUM
     Indication: HYPERSENSITIVITY
     Dosage: 10 MG, 1X/DAY (10 MG TABLET BEDTIME)
     Route: 048
  5. CLONAZEPAM. [Concomitant]
     Active Substance: CLONAZEPAM
     Indication: ANXIETY
     Dosage: 0.5 MG, AS NEEDED (2 TIMES DAILY AS NEEDED )
     Route: 048
  6. MIRENA [Concomitant]
     Active Substance: LEVONORGESTREL
     Indication: ANAEMIA
     Dosage: UNK
     Dates: start: 201211, end: 201711
  7. LYRICA [Suspect]
     Active Substance: PREGABALIN
     Indication: FIBROMYALGIA
     Dosage: 100 MG, 2X/DAY
     Route: 048
  8. MELOXICAM. [Concomitant]
     Active Substance: MELOXICAM
     Indication: ANTIINFLAMMATORY THERAPY
     Dosage: 15 MG, DAILY
     Route: 048
  9. DICYCLOMINE HCL [Concomitant]
     Active Substance: DICYCLOMINE HYDROCHLORIDE
     Indication: IRRITABLE BOWEL SYNDROME
     Dosage: 10 MG, 4X/DAY
     Route: 048
  10. CITALOPRAM [CITALOPRAM HYDROBROMIDE] [Concomitant]
     Active Substance: CITALOPRAM HYDROBROMIDE
     Indication: DEPRESSION
     Dosage: 20 MG, 1X/DAY (20 MG TABLET MORNING)
     Route: 048
  11. OXYBUTYNIN CHLORIDE. [Concomitant]
     Active Substance: OXYBUTYNIN CHLORIDE
     Indication: MUSCLE SPASMS
     Dosage: 15 MG, DAILY
     Route: 048
  12. VITAMIN D3 [Concomitant]
     Active Substance: CHOLECALCIFEROL
     Indication: HYPOVITAMINOSIS
     Dosage: 5000 IU, 1X/DAY (5000 UNIT TABLET BEDTIME)
     Route: 048
  13. VENTOLIN HFA [Concomitant]
     Active Substance: ALBUTEROL SULFATE
     Indication: ASTHMA
     Dosage: 180 UG, AS NEEDED (2 PUFF BY INHALATION ROUTE; 90 MCG/ACTUATION AEROSOL EVERY 6 HOURS AS NEEDED)
  14. FIORICET [Concomitant]
     Active Substance: ACETAMINOPHEN\BUTALBITAL\CAFFEINE
     Indication: MIGRAINE
     Dosage: 1 DF, AS NEEDED (1 TABLET BY ORAL ROUTE/50-325-40 EVERY 8 HOURS AS NEEDED)
     Route: 048
  15. CETIRIZINE [Concomitant]
     Active Substance: CETIRIZINE HYDROCHLORIDE
     Indication: HYPERSENSITIVITY
     Dosage: 10 MG, 1X/DAY (10 MG TABLET MORNING )
     Route: 048
  16. OMEPRAZOLE. [Concomitant]
     Active Substance: OMEPRAZOLE
     Indication: GASTRIC PH DECREASED
     Dosage: 20 MG, DAILY
     Route: 048

REACTIONS (12)
  - Therapeutic product effect incomplete [Unknown]
  - Heart rate abnormal [Not Recovered/Not Resolved]
  - Dyspnoea [Recovering/Resolving]
  - Labyrinthitis [Unknown]
  - Pain [Unknown]
  - Malaise [Unknown]
  - Insomnia [Unknown]
  - Memory impairment [Unknown]
  - Chest pain [Recovering/Resolving]
  - Gastroenteritis viral [Not Recovered/Not Resolved]
  - Bronchitis [Unknown]
  - Influenza [Not Recovered/Not Resolved]

NARRATIVE: CASE EVENT DATE: 201811
